FAERS Safety Report 6644933-4 (Version None)
Quarter: 2010Q1

REPORT INFORMATION
  Report Type: 
  Country: None (occurrence: None)
  Receive Date: 20100322
  Receipt Date: 20100309
  Transmission Date: 20100710
  Serious: Yes (Hospitalization)
  Sender: FDA-Public Use
  Company Number: PHHY2010IT14379

PATIENT

DRUGS (1)
  1. DEFERASIROX [Suspect]

REACTIONS (2)
  - POLYDIPSIA [None]
  - POLYURIA [None]
